FAERS Safety Report 23074738 (Version 1)
Quarter: 2023Q4

REPORT INFORMATION
  Report Type: Spontaneous
  Country: US (occurrence: US)
  Receive Date: 20231017
  Receipt Date: 20231017
  Transmission Date: 20240110
  Serious: Yes (Other)
  Sender: FDA-Public Use
  Company Number: US-BAXTER-2023BAX033091

PATIENT
  Age: 20 Year
  Sex: Male

DRUGS (2)
  1. BUPIVACAINE [Suspect]
     Active Substance: BUPIVACAINE
     Indication: Nerve block
     Dosage: UNK
     Route: 065
  2. MEPIVACAINE [Suspect]
     Active Substance: MEPIVACAINE HYDROCHLORIDE
     Indication: Nerve block
     Dosage: UNK
     Route: 065

REACTIONS (6)
  - Encephalopathy [Unknown]
  - Seizure [Unknown]
  - Ventricular fibrillation [Unknown]
  - Local anaesthetic systemic toxicity [Unknown]
  - Respiratory arrest [Unknown]
  - Cardiac arrest [Unknown]
